FAERS Safety Report 25787365 (Version 1)
Quarter: 2025Q3

REPORT INFORMATION
  Report Type: Spontaneous
  Country: US (occurrence: US)
  Receive Date: 20250910
  Receipt Date: 20250910
  Transmission Date: 20251021
  Serious: Yes (Other)
  Sender: GLAND PHARMA LTD
  Company Number: US-GLANDPHARMA-US-2025GLNSPO01807

PATIENT
  Sex: Female

DRUGS (1)
  1. ERTAPENEM [Suspect]
     Active Substance: ERTAPENEM
     Indication: Nephrolithiasis
     Route: 042

REACTIONS (9)
  - Hepatotoxicity [Recovering/Resolving]
  - Hepatic ischaemia [Recovering/Resolving]
  - Immunosuppression [Recovering/Resolving]
  - Hepatic enzyme increased [Recovering/Resolving]
  - Feeding disorder [Recovering/Resolving]
  - Dyspnoea [Recovering/Resolving]
  - Flank pain [Recovering/Resolving]
  - Abdominal pain upper [Recovering/Resolving]
  - Asthenia [Recovering/Resolving]
